FAERS Safety Report 5832384-1 (Version None)
Quarter: 2008Q3

REPORT INFORMATION
  Report Type: 
  Country: None (occurrence: None)
  Receive Date: 20080804
  Receipt Date: 20080725
  Transmission Date: 20090109
  Serious: Yes (Other)
  Sender: FDA-Public Use
  Company Number: US-MERCK-0805USA00692

PATIENT
  Sex: Female

DRUGS (6)
  1. FOSAMAX [Suspect]
     Indication: OSTEOPENIA
     Route: 048
     Dates: start: 20021001
  2. FOSAMAX [Suspect]
     Route: 048
     Dates: start: 20040219
  3. FOSAMAX [Suspect]
     Indication: OSTEOPOROSIS
     Route: 048
     Dates: start: 20021001
  4. FOSAMAX [Suspect]
     Route: 048
     Dates: start: 20040219
  5. PREMARIN [Concomitant]
     Indication: HORMONE REPLACEMENT THERAPY
     Route: 065
     Dates: start: 19840101
  6. EFFEXOR [Concomitant]
     Indication: DEPRESSION
     Route: 065
     Dates: start: 20020101, end: 20080501

REACTIONS (4)
  - ABSCESS [None]
  - JAW DISORDER [None]
  - JAW FRACTURE [None]
  - OSTEONECROSIS [None]
